FAERS Safety Report 6628436-9 (Version None)
Quarter: 2010Q1

REPORT INFORMATION
  Report Type: 
  Country: None (occurrence: None)
  Receive Date: 20100311
  Receipt Date: 20100303
  Transmission Date: 20100710
  Serious: Yes (Other)
  Sender: FDA-Public Use
  Company Number: GB-ROCHE-689892

PATIENT

DRUGS (1)
  1. HERCEPTIN [Suspect]
     Indication: BREAST CANCER
     Dosage: ADJUVANT THERAPY
     Route: 065

REACTIONS (2)
  - NEUROPATHY PERIPHERAL [None]
  - SENSORY DISTURBANCE [None]
